FAERS Safety Report 6619177-2 (Version None)
Quarter: 2010Q1

REPORT INFORMATION
  Report Type: 
  Country: None (occurrence: None)
  Receive Date: 20100304
  Receipt Date: 20100304
  Transmission Date: 20100710
  Serious: Yes (Other)
  Sender: FDA-Public Use
  Company Number: None

PATIENT
  Sex: Female
  Weight: 72.5755 kg

DRUGS (2)
  1. ACTONEL [Suspect]
     Indication: OSTEOPENIA
     Dosage: 150 MG 1/MONTH PO
     Route: 048
     Dates: start: 20090401, end: 20090731
  2. ALENDRONATE SODIUM [Suspect]
     Indication: OSTEOPENIA
     Dosage: 70 MG TABLET 1/WEEKLY PO
     Route: 048
     Dates: start: 20090801, end: 20090930

REACTIONS (4)
  - ARTHRALGIA [None]
  - CHEST PAIN [None]
  - PALPITATIONS [None]
  - PRODUCT SUBSTITUTION ISSUE [None]
